FAERS Safety Report 4898312-0 (Version None)
Quarter: 2006Q1

REPORT INFORMATION
  Report Type: 
  Country: None (occurrence: None)
  Receive Date: 20060127
  Receipt Date: 20060119
  Transmission Date: 20060701
  Serious: Yes (Other)
  Sender: FDA-Public Use
  Company Number: 2006009867

PATIENT
  Age: 14 Year
  Sex: Female

DRUGS (1)
  1. LISTERINE (MENTHOL, METHYL SALICYLATE, EUCALYPTOL, THYMOL) [Suspect]
     Indication: ACCIDENTAL EXPOSURE
     Dosage: 1 MOUTHFUL ONCE, ORAL
     Route: 048
     Dates: start: 20060119, end: 20060119

REACTIONS (3)
  - ACCIDENTAL EXPOSURE [None]
  - DYSPEPSIA [None]
  - LOSS OF CONSCIOUSNESS [None]
